FAERS Safety Report 7248864 (Version 23)
Quarter: 2013Q3

REPORT INFORMATION
  Report Type: Spontaneous
  Country: US (occurrence: US)
  Receive Date: 20100119
  Receipt Date: 20130808
  Transmission Date: 20140515
  Serious: Yes (Other)
  Sender: FDA-Public Use
  Company Number: PHEH2010US00586

PATIENT
  Sex: Female

DRUGS (16)
  1. AREDIA [Suspect]
     Indication: BREAST CANCER
     Dates: end: 200803
  2. ZOMETA [Suspect]
     Indication: BREAST CANCER
  3. RADIATION THERAPY [Concomitant]
  4. CHEMOTHERAPEUTICS [Concomitant]
  5. CLINDAMYCIN [Concomitant]
     Dosage: 150 MG, QID
  6. AMOXYCILLIN [Concomitant]
     Dosage: 500 MG, TID
  7. REGLAN [Concomitant]
  8. MORPHINE [Concomitant]
  9. TYKERB [Concomitant]
  10. XELODA [Concomitant]
  11. TAMOXIFEN [Concomitant]
  12. HERCEPTIN [Concomitant]
  13. CARBOPLATIN [Concomitant]
  14. TAXOTERE [Concomitant]
  15. AROMASIN [Concomitant]
  16. FOLIC ACID [Concomitant]

REACTIONS (104)
  - Pyogenic granuloma [Unknown]
  - Ovarian cyst [Unknown]
  - Osteonecrosis of jaw [Unknown]
  - Injury [Unknown]
  - Pain [Unknown]
  - Anxiety [Unknown]
  - Anhedonia [Unknown]
  - Metastases to central nervous system [Unknown]
  - Central nervous system lesion [Unknown]
  - Subdural haematoma [Unknown]
  - Vasogenic cerebral oedema [Unknown]
  - Metastases to lung [Unknown]
  - Metastases to bone [Unknown]
  - Bone lesion [Unknown]
  - Metastases to liver [Unknown]
  - Cholelithiasis [Unknown]
  - Osteoporosis [Unknown]
  - Spinal fracture [Unknown]
  - Back pain [Unknown]
  - Osteopenia [Unknown]
  - Fall [Unknown]
  - Spinal osteoarthritis [Unknown]
  - Bone infarction [Unknown]
  - Pneumocephalus [Unknown]
  - Pericardial effusion [Unknown]
  - Mitral valve incompetence [Unknown]
  - Tricuspid valve incompetence [Unknown]
  - Bundle branch block right [Unknown]
  - Tachycardia [Unknown]
  - Hypertension [Unknown]
  - Cardiac murmur [Unknown]
  - Mental status changes [Unknown]
  - Hyperkalaemia [Unknown]
  - Nephrolithiasis [Unknown]
  - Aortic valve sclerosis [Unknown]
  - Spinal column stenosis [Unknown]
  - Lung infiltration [Unknown]
  - Mitral valve calcification [Unknown]
  - Depression [Unknown]
  - Hypothyroidism [Unknown]
  - Temporomandibular joint syndrome [Unknown]
  - Anaemia [Unknown]
  - Orthostatic hypotension [Unknown]
  - Decreased appetite [Unknown]
  - Gait disturbance [Unknown]
  - Sinus disorder [Unknown]
  - Dizziness [Unknown]
  - Asthenia [Unknown]
  - Local swelling [Unknown]
  - Erythema [Unknown]
  - Urinary incontinence [Unknown]
  - Migraine [Unknown]
  - Osteoarthritis [Unknown]
  - Abdominal pain [Unknown]
  - Visual impairment [Unknown]
  - Sinusitis [Unknown]
  - Diarrhoea [Unknown]
  - Neck pain [Unknown]
  - Confusional state [Unknown]
  - Cystitis [Unknown]
  - Neuropathy peripheral [Unknown]
  - Dyspnoea [Unknown]
  - Insomnia [Unknown]
  - Leukocytosis [Unknown]
  - Atelectasis [Unknown]
  - Sepsis [Unknown]
  - Hiatus hernia [Unknown]
  - Metastases to the mediastinum [Unknown]
  - Metastases to lymph nodes [Unknown]
  - Toothache [Unknown]
  - Hypokinesia [Unknown]
  - Psoriasis [Unknown]
  - Pityriasis [Unknown]
  - Intervertebral disc degeneration [Unknown]
  - Fibrosis [Unknown]
  - Facial pain [Unknown]
  - Neoplasm progression [Unknown]
  - Malignant neoplasm progression [Unknown]
  - Arteriosclerosis coronary artery [Unknown]
  - Atrophy [Unknown]
  - Osteomyelitis [Unknown]
  - Conjunctivitis bacterial [Unknown]
  - Subdural haemorrhage [Unknown]
  - Decubitus ulcer [Unknown]
  - Pleural fibrosis [Unknown]
  - Intervertebral disc space narrowing [Unknown]
  - Pathological fracture [Unknown]
  - Compression fracture [Unknown]
  - Osteolysis [Unknown]
  - Spinal cord compression [Unknown]
  - Paranasal cyst [Unknown]
  - Visual acuity reduced [Unknown]
  - Aortic calcification [Unknown]
  - Lymphadenopathy [Unknown]
  - Hepatic cyst [Unknown]
  - Osteosclerosis [Unknown]
  - Left atrial dilatation [Unknown]
  - Left ventricular dysfunction [Unknown]
  - Pulmonary fibrosis [Unknown]
  - Vision blurred [Unknown]
  - Alopecia [Unknown]
  - Spinal disorder [Unknown]
  - Bronchiectasis [Unknown]
  - Cognitive disorder [Unknown]
